FAERS Safety Report 9455096 (Version 1)
Quarter: 2013Q3

REPORT INFORMATION
  Report Type: Spontaneous
  Country: US (occurrence: US)
  Receive Date: 20130813
  Receipt Date: 20130813
  Transmission Date: 20140515
  Serious: Yes (Hospitalization)
  Sender: FDA-Public Use
  Company Number: US-SUN PHARMACEUTICAL INDUSTRIES LTD-2013SUN03764

PATIENT
  Age: 62 Year
  Sex: Male

DRUGS (16)
  1. CLOZAPINE 25 MG TABLETS [Suspect]
     Indication: SCHIZOAFFECTIVE DISORDER
     Route: 065
  2. MIRTAZAPINE [Suspect]
     Indication: SCHIZOAFFECTIVE DISORDER
     Route: 065
  3. ACETAMINOPHEN [Concomitant]
  4. ALBUTEROL [Concomitant]
  5. ATENOLOL [Concomitant]
  6. BENZTROPINE [Concomitant]
  7. BUDESONIDE [Concomitant]
  8. CLOZAPINE [Concomitant]
  9. DOCUSATE [Concomitant]
  10. FERROUS SULFATE [Concomitant]
  11. GEMFIBROZIL [Concomitant]
  12. GLIPIZIDE [Concomitant]
  13. LORAZEPAM [Concomitant]
  14. METFORMIN [Concomitant]
  15. MIRTAZAPINE [Concomitant]
  16. OXYBUTYNIN [Concomitant]

REACTIONS (7)
  - Drug interaction [Recovering/Resolving]
  - Catatonia [Recovering/Resolving]
  - Agitation [Recovering/Resolving]
  - Aggression [Recovering/Resolving]
  - Confusional state [Recovering/Resolving]
  - Hallucination, auditory [Recovering/Resolving]
  - Toxicity to various agents [Recovering/Resolving]
